FAERS Safety Report 4874583-1 (Version None)
Quarter: 2006Q1

REPORT INFORMATION
  Report Type: 
  Country: None (occurrence: None)
  Receive Date: 20060106
  Receipt Date: 20051005
  Transmission Date: 20060701
  Serious: Yes (Death, Hospitalization)
  Sender: FDA-Public Use
  Company Number: US-MERCK-0510USA05366

PATIENT
  Age: 73 Year
  Sex: Female

DRUGS (2)
  1. VIOXX [Suspect]
     Indication: ARTHRITIS
     Route: 048
     Dates: start: 20000501, end: 20020401
  2. VIOXX [Suspect]
     Indication: GOUT
     Route: 048
     Dates: start: 20000501, end: 20020401

REACTIONS (5)
  - BLOOD PRESSURE INCREASED [None]
  - CARDIO-RESPIRATORY ARREST [None]
  - CEREBRAL ARTERY THROMBOSIS [None]
  - FALL [None]
  - ISCHAEMIC STROKE [None]
